FAERS Safety Report 23066746 (Version 1)
Quarter: 2023Q4

REPORT INFORMATION
  Report Type: Spontaneous
  Country: IT (occurrence: IT)
  Receive Date: 20231016
  Receipt Date: 20231016
  Transmission Date: 20240110
  Serious: Yes (Other)
  Sender: FDA-Public Use
  Company Number: IT-AMGEN-ITASP2023180684

PATIENT
  Age: 52 Year
  Sex: Female

DRUGS (35)
  1. EVOLOCUMAB [Suspect]
     Active Substance: EVOLOCUMAB
     Indication: Dyslipidaemia
     Dosage: 420 MILLIGRAM, Q4WK
     Route: 058
     Dates: start: 202107
  2. EVOLOCUMAB [Suspect]
     Active Substance: EVOLOCUMAB
     Indication: Type IIa hyperlipidaemia
     Dosage: 420 MILLIGRAM, Q4WK
     Route: 065
     Dates: start: 202204
  3. CYCLOSPORINE [Suspect]
     Active Substance: CYCLOSPORINE
     Indication: Product used for unknown indication
     Dosage: 75 MILLIGRAM, QD
     Route: 065
     Dates: start: 202009
  4. CYCLOSPORINE [Suspect]
     Active Substance: CYCLOSPORINE
     Dosage: 50 MILLIGRAM, QD
     Route: 065
     Dates: start: 202009
  5. CYCLOSPORINE [Suspect]
     Active Substance: CYCLOSPORINE
     Dosage: 25 MILLIGRAM, QD
     Route: 065
     Dates: start: 202011
  6. CYCLOSPORINE [Suspect]
     Active Substance: CYCLOSPORINE
     Dosage: 50 MILLIGRAM, QD
     Route: 065
     Dates: start: 202011
  7. CYCLOSPORINE [Suspect]
     Active Substance: CYCLOSPORINE
     Dosage: 50 MILLIGRAM, QD
     Route: 065
     Dates: start: 202105
  8. CYCLOSPORINE [Suspect]
     Active Substance: CYCLOSPORINE
     Dosage: 25 MILLIGRAM, QD
     Route: 065
     Dates: start: 202105
  9. CYCLOSPORINE [Suspect]
     Active Substance: CYCLOSPORINE
     Dosage: 50 MILLIGRAM, QD
     Route: 065
     Dates: start: 202107
  10. CYCLOSPORINE [Suspect]
     Active Substance: CYCLOSPORINE
     Dosage: 25 MILLIGRAM, QD
     Route: 065
     Dates: start: 202107
  11. CYCLOSPORINE [Suspect]
     Active Substance: CYCLOSPORINE
     Dosage: 25 MILLIGRAM, QD
     Route: 065
     Dates: start: 202204
  12. CYCLOSPORINE [Suspect]
     Active Substance: CYCLOSPORINE
     Dosage: 50 MILLIGRAM, QD
     Route: 065
     Dates: start: 202204
  13. ATORVASTATIN [Suspect]
     Active Substance: ATORVASTATIN
     Indication: Dyslipidaemia
     Dosage: UNK
     Route: 065
  14. FENOFIBRATE [Suspect]
     Active Substance: FENOFIBRATE
     Indication: Dyslipidaemia
     Dosage: 145 MILLIGRAM, QD
     Route: 065
     Dates: start: 202009
  15. SIMVASTATIN [Suspect]
     Active Substance: SIMVASTATIN
     Indication: Dyslipidaemia
     Dosage: UNK
     Route: 065
  16. EZETIMIBE [Concomitant]
     Active Substance: EZETIMIBE
     Indication: Dyslipidaemia
     Dosage: UNK
     Route: 065
  17. ROSUVASTATIN [Concomitant]
     Active Substance: ROSUVASTATIN
     Dosage: 5 MILLIGRAM EVERY 2 DAYS
     Dates: start: 202105
  18. ROSUVASTATIN [Concomitant]
     Active Substance: ROSUVASTATIN
     Dosage: 5 MILLIGRAM EVERY 2 DAYS
     Dates: start: 202107
  19. ROSUVASTATIN [Concomitant]
     Active Substance: ROSUVASTATIN
     Dosage: 5 MILLIGRAM EVERY 2 DAYS
     Dates: start: 202204
  20. METHYLPREDNISOLONE [Concomitant]
     Active Substance: METHYLPREDNISOLONE
     Dosage: 4 MILLIGRAM, QD
     Route: 065
     Dates: start: 202009
  21. METHYLPREDNISOLONE [Concomitant]
     Active Substance: METHYLPREDNISOLONE
     Dosage: 4 MILLIGRAM, QD
     Route: 065
     Dates: start: 202011
  22. METHYLPREDNISOLONE [Concomitant]
     Active Substance: METHYLPREDNISOLONE
     Dosage: 4 MILLIGRAM, QD
     Route: 065
     Dates: start: 202105
  23. METHYLPREDNISOLONE [Concomitant]
     Active Substance: METHYLPREDNISOLONE
     Dosage: 4 MILLIGRAM, QD
     Route: 065
     Dates: start: 202107
  24. METHYLPREDNISOLONE [Concomitant]
     Active Substance: METHYLPREDNISOLONE
     Dosage: 4 MILLIGRAM, QD
     Route: 065
     Dates: start: 202104
  25. RAMIPRIL [Concomitant]
     Active Substance: RAMIPRIL
     Dosage: 2.5 MILLIGRAM, QD
     Route: 065
  26. HYDROCHLOROTHIAZIDE [Concomitant]
     Active Substance: HYDROCHLOROTHIAZIDE
     Dosage: 12.5 MILLIGRAM, QD
     Route: 065
  27. ASPIRIN [Concomitant]
     Active Substance: ASPIRIN
     Dosage: 100 MILLIGRAM, QD
     Route: 065
  28. OMALIZUMAB [Concomitant]
     Active Substance: OMALIZUMAB
     Dosage: 300 MILLIGRAM, Q4WK
     Route: 058
     Dates: start: 202011
  29. OMALIZUMAB [Concomitant]
     Active Substance: OMALIZUMAB
     Dosage: 300 MILLIGRAM, Q4WK
     Route: 058
     Dates: start: 202105
  30. OMALIZUMAB [Concomitant]
     Active Substance: OMALIZUMAB
     Dosage: 300 MILLIGRAM, Q4WK
     Route: 058
     Dates: start: 202107
  31. OMALIZUMAB [Concomitant]
     Active Substance: OMALIZUMAB
     Dosage: 300 MILLIGRAM, Q4WK
     Route: 058
     Dates: start: 202204
  32. OMEGA-3 ACIDS [Concomitant]
     Active Substance: OMEGA-3 FATTY ACIDS
     Dosage: 1 GRAMX 5 DAY
     Route: 065
     Dates: start: 202011
  33. OMEGA-3 ACIDS [Concomitant]
     Active Substance: OMEGA-3 FATTY ACIDS
     Dosage: 1 GRAMX 5 DAY
     Route: 065
     Dates: start: 202105
  34. OMEGA-3 ACIDS [Concomitant]
     Active Substance: OMEGA-3 FATTY ACIDS
     Dosage: 1 GRAMX 5 DAY
     Route: 065
     Dates: start: 202107
  35. OMEGA-3 ACIDS [Concomitant]
     Active Substance: OMEGA-3 FATTY ACIDS
     Dosage: 1 GRAMX 5 DAY
     Route: 065
     Dates: start: 202204

REACTIONS (3)
  - Renal impairment [Recovering/Resolving]
  - Drug ineffective [Unknown]
  - Influenza like illness [Recovering/Resolving]
